FAERS Safety Report 6088931-0 (Version None)
Quarter: 2009Q1

REPORT INFORMATION
  Report Type: 
  Country: None (occurrence: None)
  Receive Date: 20090224
  Receipt Date: 20090121
  Transmission Date: 20090719
  Serious: No
  Sender: FDA-Public Use
  Company Number: US-BAYER-200910231BCC

PATIENT
  Age: 60 Year
  Sex: Male
  Weight: 79 kg

DRUGS (4)
  1. ALEVE [Suspect]
     Indication: HEADACHE
     Dosage: UNIT DOSE: 220 MG
     Dates: start: 20090118
  2. ALEVE [Suspect]
     Dosage: TOTAL DAILY DOSE: 440 MG  UNIT DOSE: 220 MG
     Dates: start: 20090119
  3. ALEVE [Suspect]
     Dosage: UNIT DOSE: 220 MG
     Dates: start: 20090120
  4. AMOXICILLIN AND CLAVULANATE POTASSIUM [Concomitant]

REACTIONS (1)
  - SINUS HEADACHE [None]
